FAERS Safety Report 5830989-5 (Version None)
Quarter: 2008Q3

REPORT INFORMATION
  Report Type: 
  Country: None (occurrence: None)
  Receive Date: 20080801
  Receipt Date: 20070320
  Transmission Date: 20090109
  Serious: No
  Sender: FDA-Public Use
  Company Number: US-BRISTOL-MYERS SQUIBB COMPANY-14107080

PATIENT

DRUGS (1)
  1. COUMADIN [Suspect]
     Route: 048

REACTIONS (2)
  - INTERNATIONAL NORMALISED RATIO DECREASED [None]
  - LIP HAEMORRHAGE [None]
